FAERS Safety Report 8219355-5 (Version None)
Quarter: 2012Q1

REPORT INFORMATION
  Report Type: 
  Country: None (occurrence: None)
  Receive Date: 20120319
  Receipt Date: 20120313
  Transmission Date: 20120608
  Serious: Yes (Other)
  Sender: FDA-Public Use
  Company Number: JP-ASTELLAS-2012JP002367

PATIENT
  Age: 67 Year
  Sex: Male

DRUGS (1)
  1. PROGRAF [Suspect]
     Route: 065

REACTIONS (2)
  - RETINAL HAEMORRHAGE [None]
  - HAEMATOMA [None]
